FAERS Safety Report 18499547 (Version 1)
Quarter: 2020Q4

REPORT INFORMATION
  Report Type: Spontaneous
  Country: US (occurrence: US)
  Receive Date: 20201112
  Receipt Date: 20201112
  Transmission Date: 20210114
  Serious: Yes (Other)
  Sender: FDA-Public Use
  Company Number: US-BIOMARINAP-US-2020-133268

PATIENT
  Age: 31 Year
  Sex: Male

DRUGS (1)
  1. PALYNZIQ [Suspect]
     Active Substance: PEGVALIASE-PQPZ
     Indication: PRODUCT USED FOR UNKNOWN INDICATION
     Dosage: 20 MILLIGRAM, QD
     Route: 058

REACTIONS (5)
  - Feeling abnormal [Unknown]
  - Discomfort [Unknown]
  - Flushing [Unknown]
  - Hypersensitivity [Unknown]
  - Head discomfort [Unknown]

NARRATIVE: CASE EVENT DATE: 20201101
